FAERS Safety Report 4658781-8 (Version None)
Quarter: 2005Q2

REPORT INFORMATION
  Report Type: 
  Country: None (occurrence: None)
  Receive Date: 20050510
  Receipt Date: 20050510
  Transmission Date: 20051028
  Serious: No
  Sender: FDA-Public Use
  Company Number: None

PATIENT
  Age: 61 Year
  Sex: Male
  Weight: 67.6 kg

DRUGS (1)
  1. ZITROMAX 250 MG TABLET, Z-PAK [Suspect]
     Dosage: 250MG

REACTIONS (2)
  - NAUSEA [None]
  - VOMITING [None]
